FAERS Safety Report 19445223 (Version 1)
Quarter: 2021Q2

REPORT INFORMATION
  Report Type: Spontaneous
  Country: US (occurrence: US)
  Receive Date: 20210621
  Receipt Date: 20210621
  Transmission Date: 20210717
  Serious: No
  Sender: FDA-Public Use
  Company Number: US-SA-2021SA196672

PATIENT
  Age: 46 Year
  Sex: Male

DRUGS (2)
  1. LANTUS SOLOSTAR [Suspect]
     Active Substance: INSULIN GLARGINE
     Indication: TYPE 2 DIABETES MELLITUS
     Dosage: 28 UNITS ONCE DAILY
     Route: 065
     Dates: start: 2018, end: 202106
  2. LANTUS SOLOSTAR [Suspect]
     Active Substance: INSULIN GLARGINE
     Dosage: 30 UNITS ONCE DAILY
     Route: 065
     Dates: start: 202106

REACTIONS (4)
  - Drug dose omission by device [Unknown]
  - Malaise [Unknown]
  - Visual impairment [Unknown]
  - Device delivery system issue [Unknown]

NARRATIVE: CASE EVENT DATE: 2018
